FAERS Safety Report 13539199 (Version 1)
Quarter: 2017Q2

REPORT INFORMATION
  Report Type: Spontaneous
  Country: US (occurrence: US)
  Receive Date: 20170511
  Receipt Date: 20170511
  Transmission Date: 20170830
  Serious: No
  Sender: FDA-Public Use
  Company Number: None

PATIENT
  Age: 70 Year
  Sex: Female

DRUGS (1)
  1. NINLARO [Suspect]
     Active Substance: IXAZOMIB
     Indication: PLASMA CELL MYELOMA
     Dosage: 3MG WEEKLY ON DAYS 1, 8, AND 15 OF 28 DAY CYCLE BY MOUTH
     Route: 048
     Dates: start: 20161229

REACTIONS (3)
  - Paraesthesia [None]
  - Burning feet syndrome [None]
  - Burning sensation [None]

NARRATIVE: CASE EVENT DATE: 20170115
